FAERS Safety Report 10741522 (Version 2)
Quarter: 2015Q3

REPORT INFORMATION
  Report Type: Spontaneous
  Country: DK (occurrence: CA)
  Receive Date: 20150127
  Receipt Date: 20150806
  Transmission Date: 20151125
  Serious: Yes (Death, Other)
  Sender: FDA-Public Use
  Company Number: CA-FRI-1000073811

PATIENT
  Age: 40 Year
  Sex: Female
  Weight: 72 kg

DRUGS (1)
  1. ESCITALOPRAM [Suspect]
     Active Substance: ESCITALOPRAM OXALATE
     Indication: ANXIETY
     Dosage: 10 MG
     Route: 048
     Dates: start: 20120716, end: 2013

REACTIONS (4)
  - Paranoia [Unknown]
  - Delusion [Unknown]
  - Homicidal ideation [Unknown]
  - Completed suicide [Fatal]

NARRATIVE: CASE EVENT DATE: 2013
